FAERS Safety Report 13194164 (Version 4)
Quarter: 2017Q2

REPORT INFORMATION
  Report Type: Spontaneous
  Country: US (occurrence: US)
  Receive Date: 20170207
  Receipt Date: 20170519
  Transmission Date: 20170830
  Serious: No
  Sender: FDA-Public Use
  Company Number: US-009507513-1702USA002850

PATIENT
  Sex: Female

DRUGS (1)
  1. NEXPLANON [Suspect]
     Active Substance: ETONOGESTREL
     Dosage: 1 ROD EVERY THREE YEARS
     Route: 059
     Dates: start: 20160302

REACTIONS (5)
  - Mood altered [Unknown]
  - Adverse event [Unknown]
  - Premenstrual syndrome [Unknown]
  - Abdominal distension [Unknown]
  - Device kink [Unknown]
